FAERS Safety Report 9451473 (Version 1)
Quarter: 2013Q3

REPORT INFORMATION
  Report Type: Report from Study
  Country: US (occurrence: US)
  Receive Date: 20130810
  Receipt Date: 20130810
  Transmission Date: 20140515
  Serious: Yes (Hospitalization)
  Sender: FDA-Public Use
  Company Number: US-ROCHE-649677

PATIENT
  Age: 26 Year
  Sex: Female
  Weight: 69.9 kg

DRUGS (5)
  1. RITUXIMAB [Suspect]
     Indication: RHEUMATOID ARTHRITIS
     Dosage: LAST DOSE PRIOR TO SAE: 07JULY 2009
     Route: 042
  2. FOLIC ACID [Concomitant]
     Route: 065
     Dates: start: 20050831, end: 20090813
  3. IBUPROFEN [Concomitant]
     Route: 065
     Dates: start: 20050831, end: 20090813
  4. METHOTREXATE [Concomitant]
     Route: 065
     Dates: start: 20050831, end: 20090813
  5. PLACEBO [Suspect]
     Indication: RHEUMATOID ARTHRITIS
     Dosage: LAST DOSE PRIOR TO SAE: 05 JUL 06
     Route: 042
     Dates: start: 20060620

REACTIONS (1)
  - Benign intracranial hypertension [Not Recovered/Not Resolved]
